FAERS Safety Report 9241536 (Version 1)
Quarter: 2013Q2

REPORT INFORMATION
  Report Type: Spontaneous
  Country: BR (occurrence: BR)
  Receive Date: 20130419
  Receipt Date: 20130419
  Transmission Date: 20140414
  Serious: Yes (Other)
  Sender: FDA-Public Use
  Company Number: BR-PFIZER INC-2013111517

PATIENT
  Age: 90 Year
  Sex: Female
  Weight: 47 kg

DRUGS (5)
  1. PRISTIQ [Suspect]
     Dosage: UNK
     Dates: start: 201303, end: 2013
  2. AMITRIPTYLINE [Concomitant]
     Dosage: 15 MG, UNK
  3. DIAZEPAM [Concomitant]
     Dosage: 5 MG, UNK
  4. CALTREN [Concomitant]
     Dosage: UNK
  5. LOSARTEC [Concomitant]
     Dosage: UNK

REACTIONS (4)
  - Tachycardia [Unknown]
  - Blood pressure increased [Recovering/Resolving]
  - Depression [Unknown]
  - Off label use [Recovered/Resolved]
